FAERS Safety Report 6344401-3 (Version None)
Quarter: 2009Q3

REPORT INFORMATION
  Report Type: 
  Country: None (occurrence: None)
  Receive Date: 20090908
  Receipt Date: 20090828
  Transmission Date: 20100115
  Serious: Yes (Other)
  Sender: FDA-Public Use
  Company Number: PHEH2008US06330

PATIENT
  Sex: Female
  Weight: 45.351 kg

DRUGS (6)
  1. ZOMETA [Suspect]
     Indication: OSTEOPOROSIS
     Dosage: 3 MG/4 MG
     Dates: start: 20040322, end: 20051102
  2. PERIDEX [Concomitant]
  3. CLINDAMYCIN [Concomitant]
  4. TAMOXIFEN CITRATE [Concomitant]
  5. MULTIVITAMIN ^LAPPE^ [Concomitant]
  6. CALCIUM [Concomitant]

REACTIONS (26)
  - ANHEDONIA [None]
  - ANXIETY [None]
  - BONE DISORDER [None]
  - CHRONIC SINUSITIS [None]
  - DENTAL IMPLANTATION [None]
  - DIARRHOEA [None]
  - DISCOMFORT [None]
  - EMOTIONAL DISTRESS [None]
  - GINGIVAL BLEEDING [None]
  - GOITRE [None]
  - HYPOPHAGIA [None]
  - INFLUENZA [None]
  - INJURY [None]
  - LIFE EXPECTANCY SHORTENED [None]
  - MYALGIA [None]
  - OROPHARYNGEAL PAIN [None]
  - OSTEOLYSIS [None]
  - OSTEOMYELITIS [None]
  - OSTEONECROSIS [None]
  - PAIN [None]
  - PAIN IN JAW [None]
  - PHYSICAL DISABILITY [None]
  - REFLUX OESOPHAGITIS [None]
  - RESORPTION BONE INCREASED [None]
  - RESPIRATORY DISORDER [None]
  - SCAR [None]
